FAERS Safety Report 15999835 (Version 1)
Quarter: 2019Q1

REPORT INFORMATION
  Report Type: Spontaneous
  Country: US (occurrence: US)
  Receive Date: 20190225
  Receipt Date: 20190225
  Transmission Date: 20190418
  Serious: No
  Sender: FDA-Public Use
  Company Number: US-MYLANLABS-2019M1012607

PATIENT

DRUGS (2)
  1. VALSARTAN TABLETS, USP [Suspect]
     Active Substance: VALSARTAN
     Dosage: UNK UNK, QD
     Route: 048
     Dates: start: 201806, end: 201812
  2. VALSARTAN TABLETS, USP [Suspect]
     Active Substance: VALSARTAN
     Indication: HYPERTENSION
     Dosage: UNK UNK, QD
     Route: 048

REACTIONS (1)
  - Recalled product administered [Unknown]
